FAERS Safety Report 10365444 (Version 1)
Quarter: 2014Q3

REPORT INFORMATION
  Report Type: Spontaneous
  Country: US (occurrence: None)
  Receive Date: 20140805
  Receipt Date: 20140805
  Transmission Date: 20150326
  Serious: Yes (Hospitalization)
  Sender: FDA-Public Use
  Company Number: None

PATIENT
  Age: 85 Year
  Sex: Male
  Weight: 82.7 kg

DRUGS (13)
  1. METOPROLOL [Concomitant]
     Active Substance: METOPROLOL
  2. AMIODARONE [Concomitant]
     Active Substance: AMIODARONE
  3. UBIQUINONE [Concomitant]
  4. ERGOCALCIFEROL. [Concomitant]
     Active Substance: ERGOCALCIFEROL
  5. LOVASTATIN. [Concomitant]
     Active Substance: LOVASTATIN
  6. FUROSEMIDE. [Concomitant]
     Active Substance: FUROSEMIDE
  7. POTASSIUM CHLORIDE. [Concomitant]
     Active Substance: POTASSIUM CHLORIDE
  8. LISINOPRIL. [Concomitant]
     Active Substance: LISINOPRIL
  9. THIAMINE [Concomitant]
     Active Substance: THIAMINE
  10. LORATADINE. [Concomitant]
     Active Substance: LORATADINE
  11. CENTRUM SILVER [Concomitant]
     Active Substance: VITAMINS
  12. ELIQUIS [Suspect]
     Active Substance: APIXABAN
     Indication: ATRIAL FIBRILLATION
     Route: 048
  13. ASCORBIC ACID. [Concomitant]
     Active Substance: ASCORBIC ACID

REACTIONS (7)
  - Oedema peripheral [None]
  - Periorbital haematoma [None]
  - Fall [None]
  - Pain [None]
  - Paraesthesia [None]
  - Skin abrasion [None]
  - Ligament injury [None]

NARRATIVE: CASE EVENT DATE: 20140726
